FAERS Safety Report 8220561-4 (Version None)
Quarter: 2012Q1

REPORT INFORMATION
  Report Type: 
  Country: None (occurrence: None)
  Receive Date: 20120307
  Receipt Date: 20100429
  Transmission Date: 20120608
  Serious: No
  Sender: FDA-Public Use
  Company Number: PHHY2010US28342

PATIENT
  Age: 73 Year
  Sex: Male

DRUGS (1)
  1. AFINITOR [Suspect]
     Dosage: 10 MG, 5 MG, EVERY OTHER DAY
     Dates: start: 20091228

REACTIONS (2)
  - DRUG PRESCRIBING ERROR [None]
  - MALAISE [None]
